FAERS Safety Report 16135667 (Version 1)
Quarter: 2019Q1

REPORT INFORMATION
  Report Type: Spontaneous
  Country: US (occurrence: US)
  Receive Date: 20190329
  Receipt Date: 20190329
  Transmission Date: 20190418
  Serious: No
  Sender: FDA-Public Use
  Company Number: US-MATRIXX INITIATIVES, INC.-2064930

PATIENT
  Age: 49 Year
  Sex: Female
  Weight: 134.55 kg

DRUGS (5)
  1. ZICAM COLD REMEDY LOZENGES [Suspect]
     Active Substance: HOMEOPATHICS\ZINC ACETATE\ZINC GLUCONATE
     Indication: NASOPHARYNGITIS
     Route: 048
  2. MELOXICAM. [Concomitant]
     Active Substance: MELOXICAM
  3. MORPHINE [Concomitant]
     Active Substance: MORPHINE
  4. SINGULAIR [Concomitant]
     Active Substance: MONTELUKAST SODIUM
  5. VALIUM [Concomitant]
     Active Substance: DIAZEPAM

REACTIONS (1)
  - Ageusia [None]
